FAERS Safety Report 13931744 (Version 2)
Quarter: 2017Q3

REPORT INFORMATION
  Report Type: Report from Study
  Country: None (occurrence: US)
  Receive Date: 20170904
  Receipt Date: 20170918
  Transmission Date: 20171127
  Serious: Yes (Hospitalization, Other)
  Sender: FDA-Public Use
  Company Number: US-ABBVIE-17K-163-2089422-00

PATIENT
  Sex: Female
  Weight: 64.47 kg

DRUGS (1)
  1. HUMIRA [Suspect]
     Active Substance: ADALIMUMAB
     Indication: CROHN^S DISEASE
     Route: 058

REACTIONS (8)
  - Neuropathy peripheral [Unknown]
  - Abdominal pain [Unknown]
  - Hypersensitivity [Unknown]
  - Nervous system disorder [Unknown]
  - Haematochezia [Unknown]
  - Paraesthesia [Unknown]
  - Hospitalisation [Unknown]
  - Hypoaesthesia [Recovering/Resolving]

NARRATIVE: CASE EVENT DATE: 2017
